FAERS Safety Report 10163968 (Version 2)
Quarter: 2014Q2

REPORT INFORMATION
  Report Type: Spontaneous
  Country: US (occurrence: US)
  Receive Date: 20140510
  Receipt Date: 20140510
  Transmission Date: 20141212
  Serious: No
  Sender: FDA-Public Use
  Company Number: US-BRISTOL-MYERS SQUIBB COMPANY-19722727

PATIENT
  Age: 71 Year
  Sex: Female
  Weight: 136.05 kg

DRUGS (3)
  1. BYETTA PEN DISPOSABLE [Suspect]
     Indication: TYPE 2 DIABETES MELLITUS
     Dosage: RESTARTED AGAIN ON 28OCT2013
  2. METFORMIN [Concomitant]
     Route: 048
  3. GLIMEPIRIDE [Concomitant]
     Route: 048

REACTIONS (3)
  - Drug prescribing error [Unknown]
  - Injection site discolouration [Not Recovered/Not Resolved]
  - Injection site pruritus [Not Recovered/Not Resolved]
